FAERS Safety Report 4295437-8 (Version None)
Quarter: 2004Q1

REPORT INFORMATION
  Report Type: 
  Country: None (occurrence: None)
  Receive Date: 20040216
  Receipt Date: 20010910
  Transmission Date: 20041129
  Serious: Yes (Death)
  Sender: FDA-Public Use
  Company Number: US-ROCHE-267980

PATIENT
  Age: 17 Year
  Sex: Male
  Weight: 65.3 kg

DRUGS (1)
  1. ACCUTANE [Suspect]
     Route: 048
     Dates: start: 19980929, end: 19990204

REACTIONS (4)
  - COMPLETED SUICIDE [None]
  - DEPRESSION [None]
  - HAEMATOCHEZIA [None]
  - HAEMORRHOIDS [None]
